FAERS Safety Report 7690887-1 (Version None)
Quarter: 2011Q3

REPORT INFORMATION
  Report Type: 
  Country: None (occurrence: None)
  Receive Date: 20110818
  Receipt Date: 20110818
  Transmission Date: 20111222
  Serious: Yes (Hospitalization)
  Sender: FDA-Public Use
  Company Number: None

PATIENT
  Age: 62 Year
  Sex: Female
  Weight: 51.7 kg

DRUGS (1)
  1. RECLAST [Suspect]
     Indication: OSTEOPOROSIS
     Dosage: 5MG
     Route: 040
     Dates: start: 20110711, end: 20110808

REACTIONS (8)
  - INFUSION RELATED REACTION [None]
  - VOMITING [None]
  - CHILLS [None]
  - NAUSEA [None]
  - COUGH [None]
  - NO THERAPEUTIC RESPONSE [None]
  - PYREXIA [None]
  - MYALGIA [None]
